FAERS Safety Report 7866947-9 (Version None)
Quarter: 2011Q4

REPORT INFORMATION
  Report Type: 
  Country: None (occurrence: None)
  Receive Date: 20111028
  Receipt Date: 20111016
  Transmission Date: 20120403
  Serious: Yes (Death, Hospitalization)
  Sender: FDA-Public Use
  Company Number: DE-TEVA-253150GER

PATIENT
  Sex: Female
  Weight: 66 kg

DRUGS (6)
  1. CYTARABINE [Concomitant]
     Dates: start: 20100301, end: 20100501
  2. SORAFENIB [Concomitant]
     Dates: start: 20100301, end: 20100501
  3. DAUNORUBICIN HCL [Concomitant]
     Dates: start: 20100301, end: 20100501
  4. FLUDARABINE [Suspect]
     Indication: ACUTE MYELOID LEUKAEMIA
     Dosage: 50 MILLIGRAM;
     Route: 042
     Dates: start: 20100624, end: 20100628
  5. TREOSULFAN MEDAC [Suspect]
     Indication: ACUTE MYELOID LEUKAEMIA
     Dosage: 23.5 MILLIGRAM;
     Route: 042
     Dates: start: 20100624, end: 20100626
  6. ATG-FRESENIUS [Suspect]
     Indication: ACUTE MYELOID LEUKAEMIA
     Dosage: 600 MILLIGRAM;
     Route: 042
     Dates: start: 20100626, end: 20100628

REACTIONS (2)
  - THROMBOCYTOPENIA [None]
  - SUBARACHNOID HAEMORRHAGE [None]
